FAERS Safety Report 11753118 (Version 1)
Quarter: 2015Q4

REPORT INFORMATION
  Report Type: Spontaneous
  Country: US (occurrence: None)
  Receive Date: 20151118
  Receipt Date: 20151118
  Transmission Date: 20160304
  Serious: Yes (Death, Life-Threatening, Hospitalization)
  Sender: FDA-Public Use
  Company Number: None

PATIENT
  Age: 75 Year
  Sex: Male
  Weight: 66 kg

DRUGS (5)
  1. ACTEMINOPHEN-HYDROCODONE [Concomitant]
  2. RUXOLITINIB 5 MG TABS [Suspect]
     Active Substance: RUXOLITINIB
     Indication: CHRONIC LEUKAEMIA
     Route: 048
     Dates: start: 20151009, end: 20151028
  3. DAPSONE. [Concomitant]
     Active Substance: DAPSONE
  4. FAMOTIDINE. [Concomitant]
     Active Substance: FAMOTIDINE
  5. OXYCODONE [Concomitant]
     Active Substance: OXYCODONE

REACTIONS (8)
  - Pneumonia [None]
  - Disease progression [None]
  - Unresponsive to stimuli [None]
  - Epistaxis [None]
  - Pain [None]
  - International normalised ratio increased [None]
  - Post procedural haemorrhage [None]
  - Hypoxia [None]

NARRATIVE: CASE EVENT DATE: 20151028
